FAERS Safety Report 11686682 (Version 1)
Quarter: 2015Q4

REPORT INFORMATION
  Report Type: Spontaneous
  Country: US (occurrence: US)
  Receive Date: 20151030
  Receipt Date: 20151030
  Transmission Date: 20160304
  Serious: Yes (Hospitalization, Disabling)
  Sender: FDA-Public Use
  Company Number: US-009507513-1510USA014120

PATIENT
  Age: 73 Year
  Sex: Male

DRUGS (10)
  1. SIMVASTATIN TABLETS, USP [Concomitant]
     Active Substance: SIMVASTATIN
     Dosage: UNK
     Route: 048
  2. FOSAMAX PLUS D [Concomitant]
     Active Substance: ALENDRONATE SODIUM\CHOLECALCIFEROL
     Dosage: UNK
  3. FERROUS SULFATE [Concomitant]
     Active Substance: FERROUS SULFATE\FERROUS SULFATE, DRIED
     Dosage: UNK
     Route: 048
  4. FUROSEMIDE. [Concomitant]
     Active Substance: FUROSEMIDE
     Dosage: UNK
     Route: 048
  5. POLYETHYLENE GLYCOL 3350. [Suspect]
     Active Substance: POLYETHYLENE GLYCOL 3350
     Indication: PRODUCT USED FOR UNKNOWN INDICATION
     Dosage: 1 GALLON ONE TIME SWALLOW
     Route: 048
  6. AMLODIPINE [Concomitant]
     Active Substance: AMLODIPINE BESYLATE
     Dosage: UNK
  7. FLOMAX [Concomitant]
     Active Substance: TAMSULOSIN HYDROCHLORIDE
     Dosage: UNK
  8. INSULIN [Concomitant]
     Active Substance: INSULIN NOS
     Dosage: UNK
  9. SULINDAC. [Suspect]
     Active Substance: SULINDAC
     Dosage: 150 MG, QD (SWALLOW)
     Route: 048
  10. BAYER CHILDREN^S CHEWABLE ASPIRIN [Concomitant]
     Dosage: UNK

REACTIONS (2)
  - Vomiting [Unknown]
  - Acute kidney injury [Unknown]
